FAERS Safety Report 10717468 (Version 1)
Quarter: 2015Q1

REPORT INFORMATION
  Report Type: Spontaneous
  Country: US (occurrence: US)
  Receive Date: 20150116
  Receipt Date: 20150116
  Transmission Date: 20150721
  Serious: Yes (Other)
  Sender: FDA-Public Use
  Company Number: US-BAYER-2015-005023

PATIENT
  Age: 47 Year
  Sex: Female

DRUGS (1)
  1. KOGENATE FS [Suspect]
     Active Substance: ANTIHEMOPHILIC FACTOR, HUMAN RECOMBINANT
     Indication: VON WILLEBRAND^S DISEASE
     Dosage: 2800 RCOF UNITS INFUSE 2 TO 3  TIMES PER WEEK
     Route: 042

REACTIONS (3)
  - Psoriasis [None]
  - Product use issue [None]
  - Haemorrhage [Recovered/Resolved]
